FAERS Safety Report 16737266 (Version 1)
Quarter: 2019Q3

REPORT INFORMATION
  Report Type: Spontaneous
  Country: US (occurrence: US)
  Receive Date: 20190823
  Receipt Date: 20190823
  Transmission Date: 20191005
  Serious: No
  Sender: FDA-Public Use
  Company Number: US-009507513-1908USA007942

PATIENT
  Sex: Male

DRUGS (4)
  1. LANTUS [Suspect]
     Active Substance: INSULIN GLARGINE
  2. TRULICITY [Suspect]
     Active Substance: DULAGLUTIDE
  3. NOVOLOG [Suspect]
     Active Substance: INSULIN ASPART
  4. JANUVIA [Suspect]
     Active Substance: SITAGLIPTIN PHOSPHATE
     Route: 048

REACTIONS (3)
  - Malaise [Unknown]
  - Blood glucose increased [Unknown]
  - Product dose omission [Unknown]
